FAERS Safety Report 16015203 (Version 40)
Quarter: 2022Q2

REPORT INFORMATION
  Report Type: Spontaneous
  Country: CA (occurrence: CA)
  Receive Date: 20190228
  Receipt Date: 20220614
  Transmission Date: 20220721
  Serious: Yes (Hospitalization, Other)
  Sender: FDA-Public Use
  Company Number: CA-CELLTRION INC.-2019CA019030

PATIENT

DRUGS (57)
  1. INFLECTRA [Suspect]
     Active Substance: INFLIXIMAB-DYYB
     Indication: Colitis ulcerative
     Dosage: 400 MG, 0,2,6 WEEKS, THEN EVERY 8 WEEKS
     Route: 042
     Dates: start: 20190131, end: 20190514
  2. INFLECTRA [Suspect]
     Active Substance: INFLIXIMAB-DYYB
     Indication: Ankylosing spondylitis
     Dosage: UNK
     Route: 042
     Dates: start: 20190220
  3. INFLECTRA [Suspect]
     Active Substance: INFLIXIMAB-DYYB
     Dosage: 400 MG, 0,2,6 WEEKS, THEN EVERY 8 WEEKS
     Route: 042
     Dates: start: 20190319
  4. INFLECTRA [Suspect]
     Active Substance: INFLIXIMAB-DYYB
     Dosage: 400 MG, 0,2,6 WEEKS, THEN EVERY 8 WEEKS
     Route: 042
     Dates: start: 20190514
  5. INFLECTRA [Suspect]
     Active Substance: INFLIXIMAB-DYYB
     Dosage: 400 MG, 0,2,6 WEEKS, THEN EVERY 4 WEEKS
     Route: 042
     Dates: start: 20190618, end: 20200109
  6. INFLECTRA [Suspect]
     Active Substance: INFLIXIMAB-DYYB
     Dosage: 400 MG, 0,2,6 WEEKS, THEN EVERY 4 WEEKS
     Route: 042
     Dates: start: 20190703
  7. INFLECTRA [Suspect]
     Active Substance: INFLIXIMAB-DYYB
     Dosage: 400 MG, 0,2,6 WEEKS, THEN EVERY 4 WEEKS
     Route: 042
     Dates: start: 20190731
  8. INFLECTRA [Suspect]
     Active Substance: INFLIXIMAB-DYYB
     Dosage: 400 MG, 0,2,6 WEEKS, THEN EVERY 4 WEEKS
     Route: 042
     Dates: start: 20190731
  9. INFLECTRA [Suspect]
     Active Substance: INFLIXIMAB-DYYB
     Dosage: 400 MG, 0,2,6 WEEKS, THEN EVERY 4 WEEKS
     Route: 042
     Dates: start: 20190923
  10. INFLECTRA [Suspect]
     Active Substance: INFLIXIMAB-DYYB
     Dosage: 400 MG, 0,2,6 WEEKS, THEN EVERY 4 WEEKS
     Route: 042
     Dates: start: 20191021
  11. INFLECTRA [Suspect]
     Active Substance: INFLIXIMAB-DYYB
     Dosage: 400 MG, 0,2,6 WEEKS, THEN EVERY 4 WEEKS
     Route: 042
     Dates: start: 20191119
  12. INFLECTRA [Suspect]
     Active Substance: INFLIXIMAB-DYYB
     Dosage: 400 MG, 0,2,6 WEEKS, THEN EVERY 4 WEEKS
     Route: 042
     Dates: start: 20191213
  13. INFLECTRA [Suspect]
     Active Substance: INFLIXIMAB-DYYB
     Dosage: 400 MG, 0,2,6 WEEKS, THEN EVERY 4 WEEKS
     Route: 042
     Dates: start: 20200109, end: 20200109
  14. INFLECTRA [Suspect]
     Active Substance: INFLIXIMAB-DYYB
     Dosage: 800 MG AT 0, 2, 6 WEEKS, THEN EVERY 4 WEEKS (RE-INDUCTION)
     Route: 042
     Dates: start: 20200131, end: 20210118
  15. INFLECTRA [Suspect]
     Active Substance: INFLIXIMAB-DYYB
     Dosage: 800 MG AT 0, 2, 6 WEEKS, THEN EVERY 4 WEEKS (RE-INDUCTION)
     Route: 042
     Dates: start: 20200131
  16. INFLECTRA [Suspect]
     Active Substance: INFLIXIMAB-DYYB
     Dosage: 800 MG AT 0, 2, 6 WEEKS, THEN EVERY 4 WEEKS (RE-INDUCTION)
     Route: 042
     Dates: start: 20200131, end: 20210118
  17. INFLECTRA [Suspect]
     Active Substance: INFLIXIMAB-DYYB
     Dosage: 800 MG AT 0, 2, 6 WEEKS, THEN EVERY 4 WEEKS (RE-INDUCTION)
     Route: 042
     Dates: start: 20200131
  18. INFLECTRA [Suspect]
     Active Substance: INFLIXIMAB-DYYB
     Dosage: 800 MG AT 0, 2, 6 WEEKS, THEN EVERY 4 WEEKS (RE-INDUCTION)
     Route: 042
     Dates: start: 20200214
  19. INFLECTRA [Suspect]
     Active Substance: INFLIXIMAB-DYYB
     Dosage: 800 MG AT 0, 2, 6 WEEKS, THEN EVERY 4 WEEKS (RE-INDUCTION)
     Route: 042
     Dates: start: 20200312
  20. INFLECTRA [Suspect]
     Active Substance: INFLIXIMAB-DYYB
     Dosage: 800 MG AT 0, 2, 6 WEEKS, THEN EVERY 4 WEEKS (RE-INDUCTION)
     Route: 042
     Dates: start: 20200312
  21. INFLECTRA [Suspect]
     Active Substance: INFLIXIMAB-DYYB
     Dosage: 800 MG AT 0, 2, 6 WEEKS, THEN EVERY 4 WEEKS (REINDUCTION)
     Route: 042
     Dates: start: 20200312
  22. INFLECTRA [Suspect]
     Active Substance: INFLIXIMAB-DYYB
     Dosage: 800 MG AT 0, 2, 6 WEEKS, THEN EVERY 4 WEEKS (RE-INDUCTION)
     Route: 042
     Dates: start: 20200414
  23. INFLECTRA [Suspect]
     Active Substance: INFLIXIMAB-DYYB
     Dosage: 800 MG AT 0, 2, 6 WEEKS, THEN EVERY 4 WEEKS (RE-INDUCTION)
     Route: 042
     Dates: start: 20200608
  24. INFLECTRA [Suspect]
     Active Substance: INFLIXIMAB-DYYB
     Dosage: 800 MG AT 0, 2, 6 WEEKS, THEN EVERY 4 WEEKS (RE-INDUCTION)
     Route: 042
     Dates: start: 20200708
  25. INFLECTRA [Suspect]
     Active Substance: INFLIXIMAB-DYYB
     Dosage: 800 MG AT 0, 2, 6 WEEKS, THEN EVERY 4 WEEKS (RE-INDUCTION)
     Route: 042
     Dates: start: 20200708
  26. INFLECTRA [Suspect]
     Active Substance: INFLIXIMAB-DYYB
     Dosage: 800 MG AT 0, 2, 6 WEEKS, THEN EVERY 4 WEEKS (RE-INDUCTION)
     Route: 042
     Dates: start: 20200708
  27. INFLECTRA [Suspect]
     Active Substance: INFLIXIMAB-DYYB
     Dosage: 800 MG AT 0, 2, 6 WEEKS, THEN EVERY 4 WEEKS (RE-INDUCTION)
     Route: 042
     Dates: start: 20200708
  28. INFLECTRA [Suspect]
     Active Substance: INFLIXIMAB-DYYB
     Dosage: 800 MG AT 0, 2, 6 WEEKS, THEN EVERY 4 WEEKS (RE-INDUCTION)
     Route: 042
     Dates: start: 20200810
  29. INFLECTRA [Suspect]
     Active Substance: INFLIXIMAB-DYYB
     Dosage: 800 MG AT 0, 2, 6 WEEKS, THEN EVERY 4 WEEKS (RE-INDUCTION)
     Route: 042
     Dates: start: 20200810
  30. INFLECTRA [Suspect]
     Active Substance: INFLIXIMAB-DYYB
     Dosage: 800 MG AT 0, 2, 6 WEEKS, THEN EVERY 4 WEEKS (RE-INDUCTION)
     Route: 042
     Dates: start: 20200905
  31. INFLECTRA [Suspect]
     Active Substance: INFLIXIMAB-DYYB
     Dosage: 800 MG AT 0, 2, 6 WEEKS, THEN EVERY 4 WEEKS (RE-INDUCTION)
     Route: 042
     Dates: start: 20201005
  32. INFLECTRA [Suspect]
     Active Substance: INFLIXIMAB-DYYB
     Dosage: 800 MG AT 0, 2, 6 WEEKS, THEN EVERY 4 WEEKS (RE-INDUCTION)
     Route: 042
     Dates: start: 20201005
  33. INFLECTRA [Suspect]
     Active Substance: INFLIXIMAB-DYYB
     Dosage: 800 MG AT 0, 2, 6 WEEKS, THEN EVERY 4 WEEKS (RE-INDUCTION)
     Route: 042
     Dates: start: 20201005
  34. INFLECTRA [Suspect]
     Active Substance: INFLIXIMAB-DYYB
     Dosage: 800 MG AT 0, 2, 6 WEEKS, THEN EVERY 4 WEEKS (RE-INDUCTION)
     Route: 042
     Dates: start: 20201102
  35. INFLECTRA [Suspect]
     Active Substance: INFLIXIMAB-DYYB
     Dosage: 800 MG AT 0, 2, 6 WEEKS, THEN EVERY 4 WEEKS (RE-INDUCTION)
     Route: 042
     Dates: start: 20201102
  36. INFLECTRA [Suspect]
     Active Substance: INFLIXIMAB-DYYB
     Dosage: 800 MG AT 0, 2, 6 WEEKS, THEN EVERY 4 WEEKS (RE-INDUCTION)
     Route: 042
     Dates: start: 20201102
  37. INFLECTRA [Suspect]
     Active Substance: INFLIXIMAB-DYYB
     Dosage: 800 MG AT 0, 2, 6 WEEKS, THEN EVERY 4 WEEKS (RE-INDUCTION)
     Route: 042
     Dates: start: 20201127
  38. INFLECTRA [Suspect]
     Active Substance: INFLIXIMAB-DYYB
     Dosage: 900 MG EVERY 4 WEEKS
     Route: 042
     Dates: start: 20210217, end: 20211009
  39. INFLECTRA [Suspect]
     Active Substance: INFLIXIMAB-DYYB
     Dosage: 900 MG EVERY 4 WEEKS
     Route: 042
     Dates: start: 20210317
  40. INFLECTRA [Suspect]
     Active Substance: INFLIXIMAB-DYYB
     Dosage: 900 MG EVERY 4 WEEKS
     Route: 042
     Dates: start: 20210317
  41. INFLECTRA [Suspect]
     Active Substance: INFLIXIMAB-DYYB
     Dosage: 900 MG EVERY 4 WEEKS
     Route: 042
     Dates: start: 20210317
  42. INFLECTRA [Suspect]
     Active Substance: INFLIXIMAB-DYYB
     Dosage: 900 MG EVERY 4 WEEKS
     Route: 042
     Dates: start: 20210317
  43. INFLECTRA [Suspect]
     Active Substance: INFLIXIMAB-DYYB
     Dosage: 900 MG EVERY 4 WEEKS
     Route: 042
     Dates: start: 20210413
  44. INFLECTRA [Suspect]
     Active Substance: INFLIXIMAB-DYYB
     Dosage: 900 MG EVERY 4 WEEKS
     Route: 042
     Dates: start: 20210519
  45. INFLECTRA [Suspect]
     Active Substance: INFLIXIMAB-DYYB
     Dosage: 900 MG EVERY 4 WEEKS
     Route: 042
     Dates: start: 20210519
  46. INFLECTRA [Suspect]
     Active Substance: INFLIXIMAB-DYYB
     Dosage: 900 MG EVERY 4 WEEKS
     Route: 042
     Dates: start: 20210616
  47. INFLECTRA [Suspect]
     Active Substance: INFLIXIMAB-DYYB
     Dosage: 900 MG EVERY 4 WEEKS
     Route: 042
     Dates: start: 20210819, end: 20210901
  48. INFLECTRA [Suspect]
     Active Substance: INFLIXIMAB-DYYB
     Dosage: 900 MG EVERY 4 WEEKS
     Route: 042
     Dates: start: 20210910
  49. INFLECTRA [Suspect]
     Active Substance: INFLIXIMAB-DYYB
     Dosage: 900 MG EVERY 4 WEEKS
     Route: 042
     Dates: start: 20211009
  50. INFLECTRA [Suspect]
     Active Substance: INFLIXIMAB-DYYB
     Dosage: 900 MG EVERY 4 WEEKS
     Route: 042
     Dates: start: 20211108
  51. ASACOL [Concomitant]
     Active Substance: MESALAMINE
     Dosage: 4200 MG, DAILY
     Route: 065
  52. IMURAN [Concomitant]
     Active Substance: AZATHIOPRINE
     Dosage: 100 MG, FREQUENCY UNAVAILABLE
     Route: 065
  53. IRON [Concomitant]
     Active Substance: IRON
     Indication: Blood iron decreased
     Dosage: UNK
  54. IRON [Concomitant]
     Active Substance: IRON
     Dosage: 1 DF, DOSAGE INFORMATION UNAVAILABLE
     Dates: start: 202009
  55. PANTOPRAZOLE SODIUM [Concomitant]
     Active Substance: PANTOPRAZOLE SODIUM
     Dosage: 40 MG, DAILY
     Route: 065
  56. PREDNISONE [Concomitant]
     Active Substance: PREDNISONE
     Dosage: 40 MG, TAPERFREQUENCY UNAVAILABLE
     Route: 065
  57. YASMIN [Concomitant]
     Active Substance: DROSPIRENONE\ETHINYL ESTRADIOL
     Dosage: UNK

REACTIONS (17)
  - Condition aggravated [Recovering/Resolving]
  - Colitis ulcerative [Recovering/Resolving]
  - Arthritis [Recovering/Resolving]
  - Fibromyalgia [Recovering/Resolving]
  - Blood iron decreased [Unknown]
  - Therapeutic response shortened [Unknown]
  - Maternal exposure during pregnancy [Unknown]
  - Off label use [Unknown]
  - Intentional product use issue [Unknown]
  - Off label use [Unknown]
  - Inappropriate schedule of product administration [Unknown]
  - Off label use [Unknown]
  - Weight decreased [Not Recovered/Not Resolved]
  - Mobility decreased [Unknown]
  - Arthralgia [Unknown]
  - Weight increased [Not Recovered/Not Resolved]
  - COVID-19 [Unknown]

NARRATIVE: CASE EVENT DATE: 20190213
